FAERS Safety Report 10947408 (Version 1)
Quarter: 2015Q1

REPORT INFORMATION
  Report Type: Spontaneous
  Country: US (occurrence: None)
  Receive Date: 20150220
  Receipt Date: 20150220
  Transmission Date: 20150721
  Serious: Yes (Hospitalization)
  Sender: FDA-Public Use
  Company Number: 1000073370

PATIENT
  Sex: Male

DRUGS (2)
  1. TUDORZA PRESSAIR [Suspect]
     Active Substance: ACLIDINIUM BROMIDE
  2. DALIRESP [Suspect]
     Active Substance: ROFLUMILAST

REACTIONS (4)
  - Chronic obstructive pulmonary disease [None]
  - Wheezing [None]
  - Crepitations [None]
  - Productive cough [None]
